FAERS Safety Report 6251852-4 (Version None)
Quarter: 2009Q2

REPORT INFORMATION
  Report Type: 
  Country: None (occurrence: None)
  Receive Date: 20090630
  Receipt Date: 20090618
  Transmission Date: 20091009
  Serious: Yes (Other)
  Sender: FDA-Public Use
  Company Number: US-PFIZER INC-2009225981

PATIENT
  Age: 68 Year
  Sex: Male
  Weight: 55 kg

DRUGS (9)
  1. GEODON [Suspect]
     Indication: CONFUSIONAL STATE
     Dosage: 20 MG, 1X/DAY
     Route: 042
     Dates: start: 20090602, end: 20090602
  2. GEODON [Suspect]
     Indication: DELIRIUM
  3. ALBUTEROL [Concomitant]
     Dosage: UNK
  4. IRON [Concomitant]
     Dosage: UNK
  5. HYDROCHLOROTHIAZIDE [Concomitant]
     Dosage: UNK
  6. LORTAB [Concomitant]
     Dosage: UNK
  7. LISINOPRIL [Concomitant]
     Dosage: UNK
  8. OMEPRAZOLE [Concomitant]
     Dosage: UNK
  9. ZOFRAN [Concomitant]
     Dosage: UNK

REACTIONS (10)
  - ASTHENIA [None]
  - CEREBROVASCULAR ACCIDENT [None]
  - CERVICAL SPINAL STENOSIS [None]
  - CONFUSIONAL STATE [None]
  - DELIRIUM [None]
  - DIZZINESS [None]
  - INCORRECT ROUTE OF DRUG ADMINISTRATION [None]
  - LOGORRHOEA [None]
  - PARALYSIS [None]
  - TACHYCARDIA [None]
